FAERS Safety Report 6204260-6 (Version None)
Quarter: 2009Q2

REPORT INFORMATION
  Report Type: 
  Country: None (occurrence: None)
  Receive Date: 20090518
  Receipt Date: 20090205
  Transmission Date: 20091009
  Serious: No
  Sender: FDA-Public Use
  Company Number: WAES 0902USA00910

PATIENT
  Age: 80 Year
  Sex: Female

DRUGS (5)
  1. JANUVIA [Suspect]
     Indication: TYPE 2 DIABETES MELLITUS
     Dosage: 25 MG/TID/PO
     Route: 048
     Dates: start: 20081015, end: 20081019
  2. GLUCOPHAGE [Concomitant]
  3. CAPTOPRIL [Concomitant]
  4. GLIPIZIDE [Concomitant]
  5. METOPROLOL SUCCINATE [Concomitant]

REACTIONS (6)
  - ABDOMINAL DISCOMFORT [None]
  - COUGH [None]
  - DRY THROAT [None]
  - DYSPHAGIA [None]
  - HEADACHE [None]
  - INAPPROPRIATE SCHEDULE OF DRUG ADMINISTRATION [None]
